FAERS Safety Report 15744434 (Version 1)
Quarter: 2018Q4

REPORT INFORMATION
  Report Type: Spontaneous
  Country: US (occurrence: US)
  Receive Date: 20181213
  Receipt Date: 20181213
  Transmission Date: 20190205
  Serious: Yes (Other)
  Sender: FDA-Public Use
  Company Number: None

PATIENT
  Age: 57 Year
  Sex: Female
  Weight: 59.85 kg

DRUGS (4)
  1. PREDNISONE. [Concomitant]
     Active Substance: PREDNISONE
  2. BENADRYL ALLERGY [Concomitant]
     Active Substance: DIPHENHYDRAMINE HYDROCHLORIDE
  3. GARNIER SKIN RENEW MIRACLE SKIN PERFECTOR BB [Suspect]
     Active Substance: OCTINOXATE\TITANIUM DIOXIDE
     Indication: PRODUCT USED FOR UNKNOWN INDICATION
     Route: 061
     Dates: start: 20180301, end: 20181207
  4. DAWN DISHWASHING DETERGENT (METHYLISOTHIAZOLINONE) [Suspect]
     Active Substance: METHYLISOTHIAZOLINONE
     Indication: PRODUCT USED FOR UNKNOWN INDICATION
     Dosage: ?          OTHER ROUTE:SKIN CONTACT WHILE WASHING DISHES?
     Dates: start: 19900101, end: 20171207

REACTIONS (3)
  - Reaction to preservatives [None]
  - Rash pustular [None]
  - Dermatitis [None]

NARRATIVE: CASE EVENT DATE: 20180301
